FAERS Safety Report 4742333-5 (Version None)
Quarter: 2005Q3

REPORT INFORMATION
  Report Type: 
  Country: None (occurrence: None)
  Receive Date: 20050811
  Receipt Date: 20050407
  Transmission Date: 20060218
  Serious: No
  Sender: FDA-Public Use
  Company Number: US-GLAXOSMITHKLINE-A0553216A

PATIENT
  Age: 28 Year
  Sex: Female

DRUGS (2)
  1. PAXIL CR [Suspect]
     Dosage: 25MG PER DAY
     Route: 048
     Dates: start: 20040701
  2. MULTI-VITAMINS [Concomitant]

REACTIONS (3)
  - IRRITABILITY [None]
  - OLIGOMENORRHOEA [None]
  - SEXUAL DYSFUNCTION [None]
